FAERS Safety Report 21956969 (Version 1)
Quarter: 2023Q1

REPORT INFORMATION
  Report Type: Spontaneous
  Country: IT (occurrence: IT)
  Receive Date: 20230206
  Receipt Date: 20230206
  Transmission Date: 20230418
  Serious: Yes (Other)
  Sender: FDA-Public Use
  Company Number: IT-002147023-NVSC2022IT299959

PATIENT
  Age: 7 Year
  Sex: Female

DRUGS (2)
  1. DICLOFENAC [Suspect]
     Active Substance: DICLOFENAC
     Indication: Cytokine release syndrome
     Dosage: 1 MILLIGRAM/KILOGRAM, QD
     Route: 042
  2. DICLOFENAC [Suspect]
     Active Substance: DICLOFENAC
     Dosage: 0.5 MILLIGRAM/KILOGRAM, QD, (CONTINUOUS INFUSION)
     Route: 042

REACTIONS (3)
  - Cytokine release syndrome [Unknown]
  - Disease progression [Unknown]
  - Product use in unapproved indication [Unknown]
